FAERS Safety Report 5154932-X (Version None)
Quarter: 2006Q4

REPORT INFORMATION
  Report Type: 
  Country: None (occurrence: None)
  Receive Date: 20061121
  Receipt Date: 20060908
  Transmission Date: 20070319
  Serious: Yes (Hospitalization, Other)
  Sender: FDA-Public Use
  Company Number: PHBS2006JP13845

PATIENT
  Age: 67 Year
  Sex: Female

DRUGS (13)
  1. PARLODEL [Suspect]
     Indication: PARKINSON'S DISEASE
     Dosage: 7.5 MG/DAY
     Route: 048
     Dates: start: 20030606, end: 20050630
  2. PARLODEL [Suspect]
     Dosage: 15 MG/DAY
     Route: 048
     Dates: start: 20050701, end: 20060623
  3. MENESIT [Concomitant]
     Indication: PARKINSON'S DISEASE
     Dosage: 150 MG/DAY
     Route: 048
     Dates: start: 20040312
  4. MENESIT [Concomitant]
     Dosage: 200 MG/DAY
     Route: 048
  5. MENESIT [Concomitant]
     Dosage: 250 MG/DAY
     Route: 048
  6. MENESIT [Concomitant]
     Dosage: 300 MG/DAY
     Route: 048
  7. FP [Concomitant]
     Dosage: 5 MG/DAY
     Route: 048
     Dates: start: 20010926
  8. FP [Concomitant]
     Dosage: 7.5 MG/DAY
     Route: 048
  9. NORVASC [Concomitant]
     Indication: HYPERTENSION
     Dosage: 5 MG/DAY
     Route: 048
     Dates: start: 20010611
  10. BUP-4 [Concomitant]
     Indication: POLLAKIURIA
     Dosage: 20 MG/DAY
     Route: 048
     Dates: start: 20050603
  11. CABASER [Suspect]
     Indication: PARKINSON'S DISEASE
     Dosage: 4 TABLETS/DAY
     Route: 048
     Dates: start: 20001211, end: 20050630
  12. CABASER [Suspect]
     Dosage: 2 TABLETS/DAY
     Route: 048
     Dates: start: 20050701, end: 20050805
  13. PURSENNID [Concomitant]
     Indication: CONSTIPATION
     Dosage: 12 MG/DAY
     Route: 048
     Dates: start: 20050203

REACTIONS (4)
  - BLOOD CHOLESTEROL INCREASED [None]
  - CHEST X-RAY ABNORMAL [None]
  - INTERSTITIAL LUNG DISEASE [None]
  - PLEURAL EFFUSION [None]
